FAERS Safety Report 4582245-3 (Version None)
Quarter: 2005Q1

REPORT INFORMATION
  Report Type: 
  Country: None (occurrence: None)
  Receive Date: 20050119
  Receipt Date: 20041027
  Transmission Date: 20050727
  Serious: Yes (Hospitalization)
  Sender: FDA-Public Use
  Company Number: 2004-116299-NL

PATIENT
  Sex: Female

DRUGS (1)
  1. FOLLISTIM AQ [Suspect]
     Dosage: DF DAILY
     Dates: start: 20040101

REACTIONS (1)
  - OVARIAN HYPERSTIMULATION SYNDROME [None]
